FAERS Safety Report 23082732 (Version 1)
Quarter: 2023Q4

REPORT INFORMATION
  Report Type: Spontaneous
  Country: US (occurrence: US)
  Receive Date: 20231019
  Receipt Date: 20231019
  Transmission Date: 20240110
  Serious: No
  Sender: FDA-Public Use
  Company Number: US-002147023-NVSC2023US224366

PATIENT
  Age: 72 Year
  Sex: Female
  Weight: 73.03 kg

DRUGS (1)
  1. LEQVIO [Suspect]
     Active Substance: INCLISIRAN SODIUM
     Indication: Low density lipoprotein increased
     Dosage: 284 MG (/1.5 ML EVERY 6 MONTH)
     Route: 058
     Dates: start: 20230608, end: 20230911

REACTIONS (1)
  - Injection site rash [Recovering/Resolving]

NARRATIVE: CASE EVENT DATE: 20230911
